FAERS Safety Report 19459945 (Version 5)
Quarter: 2023Q1

REPORT INFORMATION
  Report Type: Spontaneous
  Country: DE (occurrence: DE)
  Receive Date: 20210625
  Receipt Date: 20230119
  Transmission Date: 20230418
  Serious: Yes (Other)
  Sender: FDA-Public Use
  Company Number: DE-002147023-PHHY2019DE195831

PATIENT
  Sex: Female
  Weight: 69 kg

DRUGS (8)
  1. LETROZOLE [Suspect]
     Active Substance: LETROZOLE
     Indication: Breast cancer
     Dosage: 2.5 MILLIGRAM, ONCE A DAY
     Route: 048
     Dates: start: 20201201
  2. FULVESTRANT [Suspect]
     Active Substance: FULVESTRANT
     Indication: Breast cancer
     Dosage: 250 MILLIGRAM (QMO)
     Route: 030
  3. KISQALI [Suspect]
     Active Substance: RIBOCICLIB
     Indication: Breast cancer
     Dosage: 600 MILLIGRAM, ONCE A DAY (ADMINISTRATION SCHEME 21 DAYS INTAKE, 7 DAYS PAUSE)
     Route: 048
     Dates: start: 20190723
  4. KISQALI [Suspect]
     Active Substance: RIBOCICLIB
     Dosage: 400 MILLIGRAM, ONCE A DAY ADMINISTRATION SCHEME 21 DAYS INTAKE, 7 DAYS PAUSE
     Route: 048
     Dates: start: 20190827
  5. KISQALI [Suspect]
     Active Substance: RIBOCICLIB
     Dosage: 400 MILLIGRAM, ONCE A DAY ADMINISTRATION SCHEME 21 DAYS INTAKE, 7 DAYS PAUSE
     Route: 048
     Dates: start: 20190924
  6. KISQALI [Suspect]
     Active Substance: RIBOCICLIB
     Dosage: 200 MILLIGRAM (SCHEME 21 DAYS INTAKE, 7 DAYS PAUSE)
     Route: 048
     Dates: start: 20200121
  7. KISQALI [Suspect]
     Active Substance: RIBOCICLIB
     Dosage: 600 MILLIGRAM, ONCE A DAY (ADMINISTRATION SCHEME 21 DAYS INTAKE, 7 DAYS PAUSE )
     Route: 048
     Dates: start: 20201201
  8. KISQALI [Suspect]
     Active Substance: RIBOCICLIB
     Dosage: 600 MILLIGRAM, ONCE A DAY (ADMINISTRATION SCHEME 21 DAYS INTAKE, 7 DAYS PAUSE )
     Route: 048
     Dates: start: 20210316

REACTIONS (22)
  - Memory impairment [Not Recovered/Not Resolved]
  - Gingival pain [Recovered/Resolved]
  - Gingival swelling [Not Recovered/Not Resolved]
  - Dry skin [Not Recovered/Not Resolved]
  - Asthenia [Not Recovered/Not Resolved]
  - Nausea [Not Recovered/Not Resolved]
  - Dizziness [Recovered/Resolved]
  - Mucosal inflammation [Not Recovered/Not Resolved]
  - Cardiovascular disorder [Recovered/Resolved]
  - Hypertension [Unknown]
  - Dyspnoea [Not Recovered/Not Resolved]
  - Nail disorder [Recovered/Resolved]
  - Epistaxis [Recovered/Resolved]
  - Arthralgia [Not Recovered/Not Resolved]
  - Swelling [Not Recovered/Not Resolved]
  - Ear pain [Not Recovered/Not Resolved]
  - Fatigue [Not Recovered/Not Resolved]
  - Bone pain [Recovered/Resolved]
  - Alopecia [Recovered/Resolved]
  - Headache [Recovered/Resolved]
  - Musculoskeletal chest pain [Recovered/Resolved]
  - Palmar-plantar erythrodysaesthesia syndrome [Not Recovered/Not Resolved]

NARRATIVE: CASE EVENT DATE: 20190804
